FAERS Safety Report 6038408-3 (Version None)
Quarter: 2009Q1

REPORT INFORMATION
  Report Type: 
  Country: None (occurrence: None)
  Receive Date: 20090115
  Receipt Date: 20081214
  Transmission Date: 20090719
  Serious: No
  Sender: FDA-Public Use
  Company Number: US-BAYER-200814904BCC

PATIENT
  Age: 62 Year
  Sex: Female
  Weight: 59 kg

DRUGS (3)
  1. ALEVE (CAPLET) [Suspect]
     Indication: FIBROMYALGIA
     Dosage: TOTAL DAILY DOSE: 220 MG  UNIT DOSE: 220 MG
     Route: 048
     Dates: start: 20081130, end: 20081130
  2. SYNTHROID [Concomitant]
  3. TYLENOL (CAPLET) [Concomitant]

REACTIONS (2)
  - FOREIGN BODY TRAUMA [None]
  - OROPHARYNGEAL PAIN [None]
